FAERS Safety Report 6611619-1 (Version None)
Quarter: 2010Q1

REPORT INFORMATION
  Report Type: 
  Country: None (occurrence: None)
  Receive Date: 20100303
  Receipt Date: 20100219
  Transmission Date: 20100710
  Serious: Yes (Hospitalization)
  Sender: FDA-Public Use
  Company Number: US-JNJFOC-20100210302

PATIENT
  Age: 5 Day
  Sex: Male
  Weight: 3.18 kg

DRUGS (2)
  1. CHILDRENS TYLENOL [Suspect]
  2. CHILDRENS TYLENOL [Suspect]
     Indication: IRRITABILITY
     Dosage: 120MG X 4, 30MG X1 OVER 1.5 DAYS

REACTIONS (3)
  - ACCIDENTAL OVERDOSE [None]
  - INCORRECT DRUG DOSAGE FORM ADMINISTERED [None]
  - LIVER FUNCTION TEST ABNORMAL [None]
